FAERS Safety Report 7548835-0 (Version None)
Quarter: 2011Q2

REPORT INFORMATION
  Report Type: 
  Country: None (occurrence: None)
  Receive Date: 20110615
  Receipt Date: 20110609
  Transmission Date: 20111010
  Serious: Yes (Hospitalization, Other)
  Sender: FDA-Public Use
  Company Number: CA-PFIZER INC-2011126382

PATIENT
  Age: 74 Year
  Sex: Female

DRUGS (6)
  1. TRUSOPT [Concomitant]
     Dosage: UNK
  2. TRIAZIDE [Concomitant]
     Dosage: UNK
  3. METFORMIN [Concomitant]
     Dosage: UNK
  4. XALATAN [Suspect]
     Indication: GLAUCOMA
     Dosage: 1DROP AT BEDTIME
     Route: 047
  5. NORVASC [Concomitant]
     Dosage: UNK
  6. COMBIGAN [Concomitant]
     Dosage: UNK

REACTIONS (1)
  - CATARACT OPERATION [None]
